FAERS Safety Report 8161267-X (Version None)
Quarter: 2012Q1

REPORT INFORMATION
  Report Type: 
  Country: None (occurrence: None)
  Receive Date: 20120222
  Receipt Date: 20120222
  Transmission Date: 20120608
  Serious: Yes (Hospitalization)
  Sender: FDA-Public Use
  Company Number: None

PATIENT
  Sex: Female
  Weight: 89.5 kg

DRUGS (2)
  1. TAXOL [Suspect]
     Dosage: 333 MG
  2. CARBOPLATIN [Suspect]
     Dosage: 603 MG

REACTIONS (6)
  - ANAEMIA [None]
  - ALKALOSIS [None]
  - LEUKOPENIA [None]
  - FEBRILE NEUTROPENIA [None]
  - HYPOPHOSPHATAEMIA [None]
  - HYPOALBUMINAEMIA [None]
